FAERS Safety Report 14950151 (Version 3)
Quarter: 2018Q2

REPORT INFORMATION
  Report Type: Spontaneous
  Country: US (occurrence: US)
  Receive Date: 20180530
  Receipt Date: 20180613
  Transmission Date: 20180711
  Serious: Yes (Other)
  Sender: FDA-Public Use
  Company Number: US-LUNDBECK-DKLU2049277

PATIENT
  Age: 68 Year
  Sex: Female

DRUGS (2)
  1. NORTHERA [Suspect]
     Active Substance: DROXIDOPA
     Indication: AUTONOMIC NEUROPATHY
     Dosage: SCHEDULE C (TITRATION COMPLETE)
     Route: 048
     Dates: start: 20180510
  2. NORTHERA [Suspect]
     Active Substance: DROXIDOPA
     Indication: ORTHOSTATIC HYPOTENSION

REACTIONS (7)
  - Nephrolithiasis [Unknown]
  - Blood pressure decreased [Unknown]
  - Muscular weakness [Unknown]
  - Dizziness [Unknown]
  - Fall [Unknown]
  - Tremor [Unknown]
  - Memory impairment [Unknown]

NARRATIVE: CASE EVENT DATE: 201805
